FAERS Safety Report 4564036-2 (Version None)
Quarter: 2005Q1

REPORT INFORMATION
  Report Type: 
  Country: None (occurrence: None)
  Receive Date: 20050128
  Receipt Date: 20040622
  Transmission Date: 20050727
  Serious: No
  Sender: FDA-Public Use
  Company Number: US-BRISTOL-MYERS SQUIBB COMPANY-12623138

PATIENT
  Age: 48 Year
  Sex: Female

DRUGS (1)
  1. CEFZIL [Suspect]

REACTIONS (1)
  - STOMATITIS [None]
